FAERS Safety Report 10652516 (Version 2)
Quarter: 2015Q1

REPORT INFORMATION
  Report Type: Spontaneous
  Country: US (occurrence: US)
  Receive Date: 20141215
  Receipt Date: 20150313
  Transmission Date: 20150720
  Serious: Yes (Other)
  Sender: FDA-Public Use
  Company Number: US-BAYER-2014-181279

PATIENT
  Age: 55 Year
  Sex: Male

DRUGS (1)
  1. CIPRO [Suspect]
     Active Substance: CIPROFLOXACIN HYDROCHLORIDE
     Indication: PROSTATE INFECTION
     Dosage: 500 MG, UNK
     Route: 048
     Dates: start: 201409

REACTIONS (6)
  - Paraesthesia [None]
  - Arthralgia [Not Recovered/Not Resolved]
  - Therapy cessation [None]
  - Hypoaesthesia [None]
  - Drug ineffective [Not Recovered/Not Resolved]
  - Tendon pain [Recovering/Resolving]

NARRATIVE: CASE EVENT DATE: 201409
